FAERS Safety Report 8587549-5 (Version None)
Quarter: 2012Q3

REPORT INFORMATION
  Report Type: 
  Country: None (occurrence: None)
  Receive Date: 20120810
  Receipt Date: 20120731
  Transmission Date: 20120928
  Serious: No
  Sender: FDA-Public Use
  Company Number: US-RB-039923-12

PATIENT
  Age: 23 Year
  Sex: Female

DRUGS (3)
  1. MULTI-VITAMINS [Concomitant]
     Indication: PREGNANCY
     Dosage: DOSE DETAILS UNKNOWN
     Route: 065
     Dates: start: 20120605
  2. SUBOXONE [Suspect]
     Indication: DRUG DEPENDENCE
     Dosage: SUBOXONE FILM
     Route: 060
     Dates: start: 20120301, end: 20120604
  3. SUBUTEX [Suspect]
     Indication: DRUG DEPENDENCE
     Route: 060
     Dates: start: 20120605

REACTIONS (2)
  - NO ADVERSE EVENT [None]
  - MATERNAL EXPOSURE DURING PREGNANCY [None]
